FAERS Safety Report 24606618 (Version 1)
Quarter: 2024Q4

REPORT INFORMATION
  Report Type: Spontaneous
  Country: FR (occurrence: FR)
  Receive Date: 20241112
  Receipt Date: 20241112
  Transmission Date: 20250115
  Serious: Yes (Other)
  Sender: B BRAUN
  Company Number: FR-B.Braun Medical Inc.-2164835

PATIENT
  Age: 70 Year
  Sex: Male

DRUGS (10)
  1. ACETAMINOPHEN [Suspect]
     Active Substance: ACETAMINOPHEN
  2. SODIUM BICARBONATE [Suspect]
     Active Substance: SODIUM BICARBONATE
  3. RAMIPRIL [Suspect]
     Active Substance: RAMIPRIL
  4. LANSOPRAZOLE [Suspect]
     Active Substance: LANSOPRAZOLE
  5. SULFAMETHOXAZOLE [Suspect]
     Active Substance: SULFAMETHOXAZOLE
  6. CEFTRIAXONE [Suspect]
     Active Substance: CEFTRIAXONE
  7. BISOPROLOL FUMARATE [Suspect]
     Active Substance: BISOPROLOL FUMARATE
  8. ASPIRIN [Suspect]
     Active Substance: ASPIRIN
  9. TRIMETHOPRIM [Suspect]
     Active Substance: TRIMETHOPRIM
  10. AMIKACIN [Suspect]
     Active Substance: AMIKACIN

REACTIONS (1)
  - Acute febrile neutrophilic dermatosis [Recovered/Resolved]
